FAERS Safety Report 9486538 (Version 2)
Quarter: 2013Q3

REPORT INFORMATION
  Report Type: Report from Study
  Country: DE (occurrence: DE)
  Receive Date: 20130829
  Receipt Date: 20130909
  Transmission Date: 20140515
  Serious: Yes (Hospitalization)
  Sender: FDA-Public Use
  Company Number: DE-US-EMD SERONO, INC.-7233108

PATIENT
  Age: 26 Year
  Sex: Female

DRUGS (2)
  1. REBIF [Suspect]
     Indication: MULTIPLE SCLEROSIS
     Dosage: STARTER KIT
     Route: 058
     Dates: start: 20130816, end: 20130817
  2. REBIF [Suspect]
     Route: 058
     Dates: start: 20130817, end: 20130819

REACTIONS (2)
  - Epilepsy [Recovered/Resolved]
  - Migraine [Recovered/Resolved]
